FAERS Safety Report 4435166-0 (Version None)
Quarter: 2004Q3

REPORT INFORMATION
  Report Type: 
  Country: None (occurrence: None)
  Receive Date: 20040827
  Receipt Date: 20040801
  Transmission Date: 20050211
  Serious: Yes (Other)
  Sender: FDA-Public Use
  Company Number: GB-ROCHE-376663

PATIENT
  Age: 48 Year
  Sex: Female
  Weight: 70 kg

DRUGS (5)
  1. CELLCEPT [Suspect]
     Route: 048
     Dates: start: 20010515, end: 20030815
  2. CELLCEPT [Suspect]
     Dosage: REDUCED DOSE.
     Route: 048
     Dates: start: 20031015
  3. CELLCEPT [Suspect]
     Route: 048
     Dates: start: 20040315
  4. TACROLIMUS [Concomitant]
     Dates: start: 20010515
  5. PREDNISONE [Concomitant]
     Dates: start: 20010515

REACTIONS (3)
  - ABDOMINAL DISCOMFORT [None]
  - LETHARGY [None]
  - LEUKOPENIA [None]
